FAERS Safety Report 7531224-2 (Version None)
Quarter: 2011Q2

REPORT INFORMATION
  Report Type: 
  Country: None (occurrence: None)
  Receive Date: 20110531
  Receipt Date: 20110526
  Transmission Date: 20111010
  Serious: Yes (Death, Congenital Anomaly)
  Sender: FDA-Public Use
  Company Number: 2010SP006729

PATIENT
  Sex: Female

DRUGS (2)
  1. ORGALUTRAN (GANIRELIX /01453701/) [Suspect]
     Indication: IN VITRO FERTILISATION
     Dates: start: 20081009, end: 20081014
  2. GONAL-F [Suspect]
     Indication: DRUG EXPOSURE VIA BREAST MILK
     Dosage: TRMA
     Route: 063
     Dates: start: 20081003, end: 20081015

REACTIONS (2)
  - RESPIRATORY DISORDER [None]
  - DRUG EXPOSURE VIA BREAST MILK [None]
